FAERS Safety Report 15625040 (Version 1)
Quarter: 2018Q4

REPORT INFORMATION
  Report Type: Spontaneous
  Country: CZ (occurrence: CZ)
  Receive Date: 20181116
  Receipt Date: 20181116
  Transmission Date: 20190205
  Serious: Yes (Hospitalization, Disabling, Other)
  Sender: FDA-Public Use
  Company Number: PHHY2018CZ155531

PATIENT
  Age: 72 Year
  Sex: Female

DRUGS (3)
  1. BONDRONAT [Suspect]
     Active Substance: IBANDRONATE SODIUM
     Indication: PRODUCT USED FOR UNKNOWN INDICATION
     Dosage: UNK
     Route: 048
  2. AFINITOR [Suspect]
     Active Substance: EVEROLIMUS
     Indication: BREAST CANCER
     Dosage: UNK
     Route: 065
  3. XGEVA [Suspect]
     Active Substance: DENOSUMAB
     Indication: HORMONE REPLACEMENT THERAPY
     Dosage: UNK (2ND LINE PALLIATIVE HRT FASLODEX + XGEVA, FURTHER THERPAY WITH XGEVA)
     Route: 065
     Dates: start: 20170313, end: 20180214

REACTIONS (1)
  - Osteonecrosis of jaw [Recovering/Resolving]

NARRATIVE: CASE EVENT DATE: 201804
